FAERS Safety Report 24610742 (Version 5)
Quarter: 2025Q1

REPORT INFORMATION
  Report Type: Spontaneous
  Country: US (occurrence: US)
  Receive Date: 20241112
  Receipt Date: 20250106
  Transmission Date: 20250409
  Serious: Yes (Hospitalization, Other)
  Sender: MERCK
  Company Number: US-009507513-2411USA000455

PATIENT
  Sex: Female
  Weight: 69.841 kg

DRUGS (31)
  1. WINREVAIR [Suspect]
     Active Substance: SOTATERCEPT-CSRK
     Indication: Product used for unknown indication
     Route: 065
     Dates: start: 2024
  2. REMODULIN [Suspect]
     Active Substance: TREPROSTINIL
     Indication: Pulmonary arterial hypertension
     Route: 058
     Dates: start: 20240506, end: 20240720
  3. REMODULIN [Suspect]
     Active Substance: TREPROSTINIL
     Route: 058
     Dates: start: 2024
  4. LECITHIN\POLOXAMER 407 [Suspect]
     Active Substance: LECITHIN\POLOXAMER 407
  5. MELATONIN [Concomitant]
     Active Substance: MELATONIN
  6. VITAMIN C [Concomitant]
     Active Substance: ASCORBIC ACID
  7. OXYCODONE HYDROCHLORIDE [Concomitant]
     Active Substance: OXYCODONE HYDROCHLORIDE
  8. ALBUTEROL SULFATE [Concomitant]
     Active Substance: ALBUTEROL SULFATE
  9. JARDIANCE [Concomitant]
     Active Substance: EMPAGLIFLOZIN
  10. OPSUMIT [Concomitant]
     Active Substance: MACITENTAN
  11. LORAZEPAM [Concomitant]
     Active Substance: LORAZEPAM
  12. TEMAZEPAM [Concomitant]
     Active Substance: TEMAZEPAM
  13. MAGNESIUM OXIDE [Concomitant]
     Active Substance: MAGNESIUM OXIDE
  14. SILDENAFIL CITRATE [Concomitant]
     Active Substance: SILDENAFIL CITRATE
  15. POTASSIUM CHLORIDE [Concomitant]
     Active Substance: POTASSIUM CHLORIDE
  16. BUPRENORPHINE HYDROCHLORIDE [Concomitant]
     Active Substance: BUPRENORPHINE HYDROCHLORIDE
  17. TRAMADOL HCL [Concomitant]
     Active Substance: TRAMADOL HYDROCHLORIDE
  18. PREDNISONE [Concomitant]
     Active Substance: PREDNISONE
  19. OXYGEN [Concomitant]
     Active Substance: OXYGEN
  20. FUROSEMIDE [Concomitant]
     Active Substance: FUROSEMIDE
  21. OMEPRAZOLE [Concomitant]
     Active Substance: OMEPRAZOLE
  22. HYDROXYZINE HYDROCHLORIDE [Concomitant]
     Active Substance: HYDROXYZINE HYDROCHLORIDE
  23. CARVEDILOL [Concomitant]
     Active Substance: CARVEDILOL
  24. KETAMINE HYDROCHLORIDE [Concomitant]
     Active Substance: KETAMINE HYDROCHLORIDE
  25. LECITHIN [Concomitant]
     Active Substance: LECITHIN
  26. CLONIDINE [Concomitant]
     Active Substance: CLONIDINE
  27. KETOPROFEN [Concomitant]
     Active Substance: KETOPROFEN
  28. AMITRIPTYLINE HYDROCHLORIDE [Concomitant]
     Active Substance: AMITRIPTYLINE HYDROCHLORIDE
  29. GABAPENTIN [Concomitant]
     Active Substance: GABAPENTIN
  30. POLOXAMER [Concomitant]
     Active Substance: POLOXAMER
  31. LIDOCAINE HYDROCHLORIDE [Concomitant]
     Active Substance: LIDOCAINE HYDROCHLORIDE

REACTIONS (10)
  - Infusion site abscess [Not Recovered/Not Resolved]
  - Infusion site mass [Unknown]
  - Neuralgia [Unknown]
  - Myalgia [Unknown]
  - Pain in jaw [Unknown]
  - Injection site discharge [Unknown]
  - Nausea [Unknown]
  - Asthenia [Unknown]
  - Injection site pain [Unknown]
  - Injection site swelling [Unknown]

NARRATIVE: CASE EVENT DATE: 20240101
